FAERS Safety Report 4402906-6 (Version None)
Quarter: 2004Q3

REPORT INFORMATION
  Report Type: 
  Country: None (occurrence: None)
  Receive Date: 20040720
  Receipt Date: 20040709
  Transmission Date: 20050211
  Serious: Yes (Hospitalization)
  Sender: FDA-Public Use
  Company Number: 2004UW12708

PATIENT
  Age: 64 Year
  Sex: Female

DRUGS (12)
  1. CRESTOR [Suspect]
     Dosage: 10 MG DAILY PO
     Route: 048
     Dates: start: 20040515, end: 20040606
  2. NO MATCH [Concomitant]
  3. AVANDIA [Concomitant]
  4. ASPIRIN [Concomitant]
  5. INSULIN [Concomitant]
  6. VERELAN [Concomitant]
  7. CELEBREX [Concomitant]
  8. LASIX [Concomitant]
  9. PLETAL [Concomitant]
  10. BENICAR [Concomitant]
  11. ECOTRIN [Concomitant]
  12. NOVOLIN 70/30 [Concomitant]

REACTIONS (11)
  - CONTUSION [None]
  - DIARRHOEA [None]
  - FALL [None]
  - NAUSEA [None]
  - PYREXIA [None]
  - RENAL FAILURE ACUTE [None]
  - RHABDOMYOLYSIS [None]
  - SHIFT TO THE LEFT [None]
  - TRAUMATIC HAEMATOMA [None]
  - VOMITING [None]
  - WHITE BLOOD CELL COUNT INCREASED [None]
